FAERS Safety Report 8577196-3 (Version None)
Quarter: 2012Q3

REPORT INFORMATION
  Report Type: 
  Country: None (occurrence: None)
  Receive Date: 20120725
  Receipt Date: 20120712
  Transmission Date: 20120928
  Serious: Yes (Hospitalization)
  Sender: FDA-Public Use
  Company Number: IMP_05934_2012

PATIENT
  Age: 25 Year
  Sex: Male

DRUGS (1)
  1. CHLOROQUINE DIPHOSPHATE [Suspect]
     Indication: PYREXIA
     Dosage: 1200 MG 1X

REACTIONS (4)
  - CYANOSIS [None]
  - RESPIRATORY RATE INCREASED [None]
  - LOSS OF CONSCIOUSNESS [None]
  - METHAEMOGLOBINAEMIA [None]
